FAERS Safety Report 7715872-2 (Version None)
Quarter: 2011Q3

REPORT INFORMATION
  Report Type: 
  Country: None (occurrence: None)
  Receive Date: 20110829
  Receipt Date: 20110829
  Transmission Date: 20111222
  Serious: Yes (Death)
  Sender: FDA-Public Use
  Company Number: None

PATIENT
  Age: 62 Year
  Sex: Female
  Weight: 79.378 kg

DRUGS (1)
  1. ENBREL [Suspect]

REACTIONS (2)
  - SEPSIS [None]
  - LARGE INTESTINE PERFORATION [None]
